FAERS Safety Report 16687024 (Version 3)
Quarter: 2019Q4

REPORT INFORMATION
  Report Type: Spontaneous
  Country: BG (occurrence: BG)
  Receive Date: 20190809
  Receipt Date: 20191012
  Transmission Date: 20200122
  Serious: Yes (Death, Hospitalization, Other)
  Sender: FDA-Public Use
  Company Number: BG-ROCHE-2339987

PATIENT
  Age: 61 Year
  Sex: Male
  Weight: 99 kg

DRUGS (6)
  1. OLODATEROL HYDROCHLORIDE;TIOTROPIUM BROMIDE [Concomitant]
     Dosage: X 2 INHALATIONS
     Route: 065
  2. FLIXOTIDE [Concomitant]
     Active Substance: FLUTICASONE PROPIONATE
     Dosage: 2 X 2 INHALATIONS
     Route: 065
  3. XARELTO [Concomitant]
     Active Substance: RIVAROXABAN
     Dosage: X 1 TABLET
     Route: 065
  4. URBASON [METHYLPREDNISOLONE] [Concomitant]
     Active Substance: METHYLPREDNISOLONE
     Indication: GRANULOMATOSIS WITH POLYANGIITIS
     Dosage: MAINTENANCE DOSE OF CORTICOSTEROIDS THERAPY BY A SCHEME
     Route: 065
     Dates: start: 20170503
  5. MABTHERA [Suspect]
     Active Substance: RITUXIMAB
     Indication: GRANULOMATOSIS WITH POLYANGIITIS
     Route: 042
     Dates: start: 20180704, end: 20190418
  6. PROPAFENONE HCL [Concomitant]
     Active Substance: PROPAFENONE HYDROCHLORIDE
     Dosage: 3 X 1 TABLET
     Route: 065

REACTIONS (24)
  - Dysarthria [Not Recovered/Not Resolved]
  - Nervous system disorder [Recovering/Resolving]
  - Abnormal behaviour [Not Recovered/Not Resolved]
  - Oral fungal infection [Not Recovered/Not Resolved]
  - Pyrexia [Recovered/Resolved]
  - Demyelinating polyneuropathy [Recovered/Resolved]
  - Decreased appetite [Not Recovered/Not Resolved]
  - Muscular weakness [Not Recovered/Not Resolved]
  - Cough [Recovered/Resolved]
  - Pain in extremity [Recovered/Resolved]
  - Depression [Not Recovered/Not Resolved]
  - Dyspnoea [Recovered/Resolved]
  - Guillain-Barre syndrome [Recovered/Resolved]
  - Chest pain [Recovered/Resolved]
  - Guillain-Barre syndrome [Unknown]
  - Musculoskeletal stiffness [Recovering/Resolving]
  - Pyrexia [Recovered/Resolved]
  - Somnolence [Not Recovered/Not Resolved]
  - Pain in extremity [Recovered/Resolved]
  - Loss of consciousness [Recovered/Resolved]
  - Weight decreased [Not Recovered/Not Resolved]
  - Strabismus [Recovering/Resolving]
  - Encephalitis [Recovered/Resolved]
  - Respiratory failure [Fatal]

NARRATIVE: CASE EVENT DATE: 20190506
